FAERS Safety Report 24031102 (Version 1)
Quarter: 2024Q2

REPORT INFORMATION
  Report Type: Spontaneous
  Country: SK (occurrence: SK)
  Receive Date: 20240628
  Receipt Date: 20240628
  Transmission Date: 20240715
  Serious: Yes (Hospitalization)
  Sender: FDA-Public Use
  Company Number: SK-B.Braun Medical Inc.-2158675

PATIENT
  Age: 44 Year
  Sex: Male

DRUGS (4)
  1. ACETAMINOPHEN [Suspect]
     Active Substance: ACETAMINOPHEN
  2. ENGERIX-B [Suspect]
     Active Substance: HEPATITIS B VIRUS SUBTYPE ADW2 HBSAG SURFACE PROTEIN ANTIGEN
  3. HUMIRA [Concomitant]
     Active Substance: ADALIMUMAB
  4. HAVRIX [Suspect]
     Active Substance: HEPATITIS A VIRUS STRAIN HM175 ANTIGEN (FORMALDEHYDE INACTIVATED)

REACTIONS (3)
  - Pyrexia [Recovered/Resolved]
  - Dermatitis allergic [Recovered/Resolved]
  - Inflammatory marker increased [Recovered/Resolved]
